FAERS Safety Report 7021211-5 (Version None)
Quarter: 2010Q3

REPORT INFORMATION
  Report Type: 
  Country: None (occurrence: None)
  Receive Date: 20100927
  Receipt Date: 20100914
  Transmission Date: 20110219
  Serious: Yes (Hospitalization)
  Sender: FDA-Public Use
  Company Number: 019113

PATIENT
  Sex: Female

DRUGS (10)
  1. ROTIGOTINE (ROTIGOTINE) [Suspect]
     Indication: PARKINSON'S DISEASE
     Dosage: 2 MG TRANSDERMAL, 12 MG TRANSDERMAL
     Route: 062
     Dates: start: 20100301
  2. ROTIGOTINE (ROTIGOTINE) [Suspect]
     Indication: PARKINSON'S DISEASE
     Dosage: 2 MG TRANSDERMAL, 12 MG TRANSDERMAL
     Route: 062
     Dates: start: 20100420
  3. CARBIDOPA + LEVODOPA [Concomitant]
  4. AMANTADINE HYDROCHLORIDE [Concomitant]
  5. ALFACALCIDOL [Concomitant]
  6. TEPRENONE [Concomitant]
  7. CLONAZEPAM [Concomitant]
  8. SOLIFENACIN SUCCINATE [Concomitant]
  9. ETIZOLAM [Concomitant]
  10. ENTACAPONE [Concomitant]

REACTIONS (2)
  - CONDITION AGGRAVATED [None]
  - PARKINSON'S DISEASE [None]
